FAERS Safety Report 6695758-5 (Version None)
Quarter: 2010Q2

REPORT INFORMATION
  Report Type: 
  Country: None (occurrence: None)
  Receive Date: 20100423
  Receipt Date: 20100423
  Transmission Date: 20101027
  Serious: Yes (Other)
  Sender: FDA-Public Use
  Company Number: None

PATIENT
  Age: 50 Year
  Sex: Female
  Weight: 72.5755 kg

DRUGS (2)
  1. CETIRIZINE HYDROCHLORIDE [Suspect]
     Indication: HEADACHE
     Dosage: 10 MG ONCE DAILY PO
     Route: 048
     Dates: start: 20100417, end: 20100417
  2. CETIRIZINE HYDROCHLORIDE [Suspect]
     Indication: LATEX ALLERGY
     Dosage: 10 MG ONCE DAILY PO
     Route: 048
     Dates: start: 20100417, end: 20100417

REACTIONS (7)
  - ABDOMINAL PAIN [None]
  - ARTHRALGIA [None]
  - CHEST PAIN [None]
  - CHILLS [None]
  - DIZZINESS [None]
  - INFLUENZA LIKE ILLNESS [None]
  - OROPHARYNGEAL PAIN [None]
